FAERS Safety Report 25562313 (Version 1)
Quarter: 2025Q3

REPORT INFORMATION
  Report Type: Spontaneous
  Country: EU (occurrence: EU)
  Receive Date: 20250716
  Receipt Date: 20250716
  Transmission Date: 20251021
  Serious: Yes (Other)
  Sender: IDORSIA PHARMACEUTICALS
  Company Number: None

PATIENT
  Age: 74 Year
  Sex: Male
  Weight: 81 kg

DRUGS (1)
  1. QUVIVIQ [Suspect]
     Active Substance: DARIDOREXANT
     Indication: Insomnia
     Dosage: 50 MG, QD
     Route: 048
     Dates: start: 20240510, end: 20241110

REACTIONS (2)
  - Neuromuscular blockade [Recovered/Resolved]
  - Urinary retention [Recovered/Resolved]

NARRATIVE: CASE EVENT DATE: 20240510
